FAERS Safety Report 16517013 (Version 1)
Quarter: 2019Q3

REPORT INFORMATION
  Report Type: Spontaneous
  Country: US (occurrence: US)
  Receive Date: 20190702
  Receipt Date: 20190702
  Transmission Date: 20191004
  Serious: No
  Sender: FDA-Public Use
  Company Number: US-009507513-1906USA007449

PATIENT
  Age: 34 Year
  Sex: Female
  Weight: 86.17 kg

DRUGS (1)
  1. NUVARING [Suspect]
     Active Substance: ETHINYL ESTRADIOL\ETONOGESTREL
     Indication: CONTRACEPTION
     Dosage: ONE RING FOR THREE WEEKS
     Route: 067
     Dates: start: 20190520

REACTIONS (1)
  - Abnormal withdrawal bleeding [Not Recovered/Not Resolved]

NARRATIVE: CASE EVENT DATE: 20190608
